FAERS Safety Report 6502666-9 (Version None)
Quarter: 2009Q4

REPORT INFORMATION
  Report Type: 
  Country: None (occurrence: None)
  Receive Date: 20091127
  Receipt Date: 20090813
  Transmission Date: 20100525
  Serious: No
  Sender: FDA-Public Use
  Company Number: 001539

PATIENT
  Sex: Female
  Weight: 70 kg

DRUGS (21)
  1. LACOSAMIDE [Suspect]
     Indication: MYOCLONIC EPILEPSY
     Dosage: 50 MG BID ORAL, 75 MG BID ORAL, 150 MG BID ORAL, 75 MG BID ORAL
     Route: 048
     Dates: start: 20090701, end: 20090801
  2. LACOSAMIDE [Suspect]
     Indication: MYOCLONIC EPILEPSY
     Dosage: 50 MG BID ORAL, 75 MG BID ORAL, 150 MG BID ORAL, 75 MG BID ORAL
     Route: 048
     Dates: start: 20090801, end: 20090811
  3. LACOSAMIDE [Suspect]
     Indication: MYOCLONIC EPILEPSY
     Dosage: 50 MG BID ORAL, 75 MG BID ORAL, 150 MG BID ORAL, 75 MG BID ORAL
     Route: 048
     Dates: start: 20090811, end: 20090812
  4. LACOSAMIDE [Suspect]
     Indication: MYOCLONIC EPILEPSY
     Dosage: 50 MG BID ORAL, 75 MG BID ORAL, 150 MG BID ORAL, 75 MG BID ORAL
     Route: 048
     Dates: start: 20090812
  5. KEPPRA [Suspect]
     Indication: MYOCLONIC EPILEPSY
     Dosage: 7.5 ML BID ORAL, 14 ML BID ORAL, 5 ML BID ORAL, 10 ML BID, KEPPRA 100MG/ML ORAL
     Route: 048
     Dates: start: 20070101, end: 20090401
  6. KEPPRA [Suspect]
     Indication: MYOCLONIC EPILEPSY
     Dosage: 7.5 ML BID ORAL, 14 ML BID ORAL, 5 ML BID ORAL, 10 ML BID, KEPPRA 100MG/ML ORAL
     Route: 048
     Dates: start: 20090401, end: 20090701
  7. KEPPRA [Suspect]
     Indication: MYOCLONIC EPILEPSY
     Dosage: 7.5 ML BID ORAL, 14 ML BID ORAL, 5 ML BID ORAL, 10 ML BID, KEPPRA 100MG/ML ORAL
     Route: 048
     Dates: start: 20090811, end: 20090812
  8. KEPPRA [Suspect]
     Indication: MYOCLONIC EPILEPSY
     Dosage: 7.5 ML BID ORAL, 14 ML BID ORAL, 5 ML BID ORAL, 10 ML BID, KEPPRA 100MG/ML ORAL
     Route: 048
     Dates: start: 20090812
  9. DEPAKENE [Concomitant]
  10. LASIX [Concomitant]
  11. LEVOTHYROXINE SODIUM [Concomitant]
  12. DIGOXIN [Concomitant]
  13. METOPROLOL [Concomitant]
  14. ARICEPT [Concomitant]
  15. CLARITIN /00917501/ [Concomitant]
  16. ASPIRIN [Concomitant]
  17. FOLIC ACID [Concomitant]
  18. DAILY MULTIVITAMIN [Concomitant]
  19. ERYTHROMYCIN [Concomitant]
  20. LACTULOSE [Concomitant]
  21. OMEPRAZOLE [Concomitant]

REACTIONS (7)
  - CONSTIPATION [None]
  - DIARRHOEA [None]
  - HYPERVIGILANCE [None]
  - MYOCLONIC EPILEPSY [None]
  - OEDEMA PERIPHERAL [None]
  - SOMNOLENCE [None]
  - VOMITING [None]
